FAERS Safety Report 9448762 (Version 2)
Quarter: 2013Q3

REPORT INFORMATION
  Report Type: Report from Study
  Country: CA (occurrence: CA)
  Receive Date: 20130808
  Receipt Date: 20130911
  Transmission Date: 20140515
  Serious: Yes (Death, Other)
  Sender: FDA-Public Use
  Company Number: CA-ROCHE-1258751

PATIENT
  Age: 52 Year
  Sex: Male
  Weight: 110 kg

DRUGS (10)
  1. RANIBIZUMAB [Suspect]
     Indication: DIABETIC RETINAL OEDEMA
     Route: 050
     Dates: start: 20110714
  2. RANIBIZUMAB [Suspect]
     Route: 050
     Dates: start: 20120709
  3. ESOMEPRAZOLE [Concomitant]
     Route: 065
     Dates: start: 2012
  4. NOVOLIN [Concomitant]
     Route: 065
     Dates: start: 2011
  5. ESOMEPRAZOLE MAGNESIUM [Concomitant]
     Route: 065
     Dates: start: 2010
  6. ONGLYZA [Concomitant]
     Route: 065
     Dates: start: 2011
  7. GLYBURIDE [Concomitant]
     Route: 065
     Dates: start: 2006
  8. METFORMIN [Concomitant]
     Route: 065
     Dates: start: 2006
  9. ATIVAN [Concomitant]
     Route: 065
     Dates: start: 2001
  10. DILAUDID [Concomitant]
     Route: 065
     Dates: end: 2012

REACTIONS (7)
  - Cardio-respiratory arrest [Fatal]
  - Asthma [Unknown]
  - Hypertension [Unknown]
  - Hyperlipidaemia [Unknown]
  - Gout [Unknown]
  - Osteoporosis [Unknown]
  - Obesity [Unknown]
